FAERS Safety Report 8781691 (Version 2)
Quarter: 2012Q4

REPORT INFORMATION
  Report Type: Report from Study
  Country: DE (occurrence: DE)
  Receive Date: 20120913
  Receipt Date: 20120924
  Transmission Date: 20130627
  Serious: Yes (Hospitalization)
  Sender: FDA-Public Use
  Company Number: DE-ASTELLAS-2012US007723

PATIENT
  Age: 3 Year
  Sex: Female
  Weight: 18 kg

DRUGS (2)
  1. TACROLIMUS OINTMENT [Suspect]
     Indication: DERMATITIS ATOPIC
     Dosage: 0.03 %, bid
     Route: 061
     Dates: start: 20101028
  2. TACROLIMUS OINTMENT [Suspect]
     Dosage: 0.03 %, once a day twice weekly
     Route: 061
     Dates: start: 20110510

REACTIONS (3)
  - Acute tonsillitis [Recovered/Resolved]
  - Conjunctivitis [Recovered/Resolved]
  - Dehydration [Recovered/Resolved]
